FAERS Safety Report 10518854 (Version 1)
Quarter: 2014Q4

REPORT INFORMATION
  Report Type: Spontaneous
  Country: BR (occurrence: BR)
  Receive Date: 20141015
  Receipt Date: 20141015
  Transmission Date: 20150528
  Serious: Yes (Other)
  Sender: FDA-Public Use
  Company Number: BR-ABBVIE-14P-020-1295550-00

PATIENT
  Age: 58 Year
  Sex: Female
  Weight: 92 kg

DRUGS (11)
  1. BENICAR [Concomitant]
     Active Substance: OLMESARTAN MEDOXOMIL
     Indication: HYPERTENSION
     Route: 048
     Dates: start: 2010
  2. SIMVASTATIN. [Concomitant]
     Active Substance: SIMVASTATIN
     Indication: BLOOD CHOLESTEROL ABNORMAL
     Route: 048
     Dates: start: 201409
  3. LIBIAM [Concomitant]
     Route: 048
  4. DUSPATALIN [Suspect]
     Active Substance: MEBEVERINE HYDROCHLORIDE
     Indication: ABDOMINAL PAIN
     Dosage: 200 MILLIGRAM; AFTER LUNCH
     Route: 048
     Dates: start: 20141001
  5. LIBIAM [Concomitant]
     Indication: MENOPAUSE
     Route: 048
  6. GLIFAGE [Concomitant]
     Active Substance: METFORMIN HYDROCHLORIDE
     Indication: BLOOD GLUCOSE INCREASED
     Route: 048
     Dates: start: 201409
  7. SELOZOK [Concomitant]
     Active Substance: METOPROLOL SUCCINATE
     Indication: HYPERTENSION
     Route: 048
     Dates: start: 2010
  8. SYNTHROID [Suspect]
     Active Substance: LEVOTHYROXINE SODIUM
     Indication: HYPOTHYROIDISM
     Dosage: 25 MICROGRAM; IN FASTING
     Route: 048
     Dates: start: 2004
  9. DUSPATALIN [Suspect]
     Active Substance: MEBEVERINE HYDROCHLORIDE
     Indication: FLATULENCE
     Route: 048
  10. OMEPRAZOLE. [Concomitant]
     Active Substance: OMEPRAZOLE
     Indication: GASTRIC DISORDER
     Dosage: 20 MILLIGRAM; IN FASTING
     Route: 048
  11. RIOPAN PLUS [Concomitant]
     Indication: ANTACID THERAPY
     Dosage: 1 SCOOP, AS NEEDED; IN FASTING
     Route: 048

REACTIONS (5)
  - Blood glucose increased [Unknown]
  - Heart rate increased [Recovered/Resolved]
  - Nausea [Not Recovered/Not Resolved]
  - Hypertension [Recovering/Resolving]
  - Chest discomfort [Recovered/Resolved]

NARRATIVE: CASE EVENT DATE: 201410
